FAERS Safety Report 7223470-2 (Version None)
Quarter: 2011Q1

REPORT INFORMATION
  Report Type: 
  Country: None (occurrence: None)
  Receive Date: 20110112
  Receipt Date: 20100715
  Transmission Date: 20110831
  Serious: No
  Sender: FDA-Public Use
  Company Number: US-ALLERGAN-1009274US

PATIENT
  Age: 79 Year
  Sex: Female

DRUGS (2)
  1. OPTIVE [Suspect]
     Indication: PRODUCT USED FOR UNKNOWN INDICATION
     Dosage: UNK
     Route: 047
  2. RESTASIS [Suspect]
     Indication: DRY EYE
     Dosage: UNK
     Route: 047
     Dates: start: 20100710, end: 20100715

REACTIONS (5)
  - ERYTHEMA OF EYELID [None]
  - EYELID DISORDER [None]
  - EYELID EXFOLIATION [None]
  - DRY SKIN [None]
  - LACRIMAL DISORDER [None]
